FAERS Safety Report 9870910 (Version 1)
Quarter: 2014Q1

REPORT INFORMATION
  Report Type: Spontaneous
  Country: US (occurrence: US)
  Receive Date: 20140205
  Receipt Date: 20140205
  Transmission Date: 20141002
  Serious: Yes (Other)
  Sender: FDA-Public Use
  Company Number: US-TEVA-459868USA

PATIENT
  Age: 61 Year
  Sex: Female
  Weight: 104.42 kg

DRUGS (4)
  1. PROAIR HFA [Suspect]
     Indication: ASTHMA
     Dates: start: 2012, end: 20140124
  2. PROAIR HFA [Suspect]
     Indication: BRONCHOSPASM
  3. FLONASE [Concomitant]
     Indication: NASAL CONGESTION
  4. FLOVENT [Concomitant]
     Indication: ASTHMA

REACTIONS (7)
  - Activities of daily living impaired [Unknown]
  - Asthma [Unknown]
  - Hyperventilation [Unknown]
  - Sinus disorder [Unknown]
  - Pruritus generalised [Not Recovered/Not Resolved]
  - Skin wound [Not Recovered/Not Resolved]
  - Insomnia [Unknown]
